FAERS Safety Report 8783161 (Version 1)
Quarter: 2012Q4

REPORT INFORMATION
  Report Type: 
  Country: US (occurrence: US)
  Receive Date: 20120913
  Receipt Date: 20120913
  Transmission Date: 20130627
  Serious: Yes (Other)
  Sender: FDA-Public Use
  Company Number: US-WATSON-2012-15682

PATIENT
  Age: 60 Year
  Sex: Female

DRUGS (10)
  1. FIORICET [Suspect]
     Indication: MIGRAINE
     Dosage: UNK
     Route: 048
  2. PAROXETINE HYDROCHLORIDE [Suspect]
     Indication: DEPRESSION
     Dosage: UNK
     Route: 048
  3. PROPRANOLOL HYDROCHLORIDE [Suspect]
     Indication: BLOOD PRESSURE
     Dosage: UNK
     Route: 048
  4. ALBUTEROL SULFATE [Suspect]
     Indication: HYPERSENSITIVITY
     Dosage: UNK
     Route: 055
  5. OMEPRAZOLE [Suspect]
     Indication: ABDOMINAL DISCOMFORT
     Dosage: UNK
     Route: 048
  6. WELLBUTRIN [Suspect]
     Indication: DEPRESSION
     Dosage: UNK
     Route: 048
  7. TRAZODONE [Suspect]
     Indication: DEPRESSION
     Dosage: UNK
     Route: 048
  8. LYRICA [Suspect]
     Indication: FIBROMYALGIA
     Dosage: UNK
     Route: 048
  9. LEVOTHYROXINE [Suspect]
     Indication: HYPOTHYROIDISM
     Dosage: UNK
     Route: 048
  10. UNKNOWN MEDICATIONS [Suspect]
     Indication: PRODUCT USED FOR UNKNOWN INDICATION
     Dosage: UNK
     Route: 065

REACTIONS (4)
  - Liposarcoma [Unknown]
  - Lipoma [Unknown]
  - Blood cholesterol increased [Unknown]
  - Alopecia [None]
